FAERS Safety Report 19802628 (Version 1)
Quarter: 2021Q3

REPORT INFORMATION
  Report Type: Spontaneous
  Country: US (occurrence: US)
  Receive Date: 20210908
  Receipt Date: 20210908
  Transmission Date: 20211014
  Serious: Yes (Life-Threatening, Hospitalization, Disabling, Other)
  Sender: FDA-Public Use
  Company Number: None

PATIENT
  Age: 40 Year
  Sex: Female
  Weight: 73.8 kg

DRUGS (7)
  1. GEODON [Suspect]
     Active Substance: ZIPRASIDONE HYDROCHLORIDE\ZIPRASIDONE MESYLATE
     Indication: DEPRESSION
     Route: 048
     Dates: start: 20210827, end: 20210902
  2. GEODON [Suspect]
     Active Substance: ZIPRASIDONE HYDROCHLORIDE\ZIPRASIDONE MESYLATE
     Indication: ANXIETY
     Route: 048
     Dates: start: 20210827, end: 20210902
  3. IBU [Concomitant]
     Active Substance: IBUPROFEN
  4. GEODON [Suspect]
     Active Substance: ZIPRASIDONE HYDROCHLORIDE\ZIPRASIDONE MESYLATE
     Indication: BIPOLAR I DISORDER
     Route: 048
     Dates: start: 20210827, end: 20210902
  5. METOPROLOL 50 MG ER [Concomitant]
  6. ASA [Concomitant]
     Active Substance: ASPIRIN
  7. LISINOPRIL (20MG) [Concomitant]
     Active Substance: LISINOPRIL

REACTIONS (14)
  - Anxiety [None]
  - Hypoaesthesia [None]
  - Sudden death [None]
  - Loss of consciousness [None]
  - Hypersensitivity [None]
  - Breast enlargement [None]
  - Tremor [None]
  - Chest pain [None]
  - Palpitations [None]
  - Chest discomfort [None]
  - Confusional state [None]
  - Limb discomfort [None]
  - Feeling abnormal [None]
  - Fatigue [None]

NARRATIVE: CASE EVENT DATE: 20210903
